FAERS Safety Report 6427886-3 (Version None)
Quarter: 2009Q4

REPORT INFORMATION
  Report Type: 
  Country: None (occurrence: None)
  Receive Date: 20091102
  Receipt Date: 20091021
  Transmission Date: 20100525
  Serious: Yes (Life-Threatening, Disabling, Other)
  Sender: FDA-Public Use
  Company Number: 2009AL006916

PATIENT
  Age: 21 Year
  Sex: Male

DRUGS (3)
  1. TRAMADOL HYDROCHLORIDE [Suspect]
     Indication: BACK PAIN
     Dosage: 100 MG; PO
     Route: 048
     Dates: start: 20061001, end: 20061101
  2. LANTUS [Concomitant]
  3. NOVORAPID [Concomitant]

REACTIONS (1)
  - HYPOGLYCAEMIA [None]
